FAERS Safety Report 7227570-2 (Version None)
Quarter: 2011Q1

REPORT INFORMATION
  Report Type: 
  Country: None (occurrence: None)
  Receive Date: 20110114
  Receipt Date: 20110111
  Transmission Date: 20110831
  Serious: Yes (Life-Threatening)
  Sender: FDA-Public Use
  Company Number: US-CELGENEUS-087-21880-11010913

PATIENT
  Sex: Male
  Weight: 35 kg

DRUGS (7)
  1. REVLIMID [Suspect]
     Indication: MULTIPLE MYELOMA
     Route: 048
     Dates: start: 20101110, end: 20101119
  2. FRANDOL [Concomitant]
     Indication: ANGINA PECTORIS
     Dosage: 1 SHEET
     Route: 065
     Dates: start: 20101110
  3. BUFFERIN [Concomitant]
     Indication: PROPHYLAXIS
     Route: 048
     Dates: start: 20101110
  4. GASTER D [Concomitant]
     Indication: PROPHYLAXIS
     Route: 048
     Dates: start: 20101110
  5. GLAKAY [Concomitant]
     Indication: OSTEOPOROSIS
     Route: 048
     Dates: start: 20101110
  6. LENADEX [Suspect]
     Indication: MULTIPLE MYELOMA
     Route: 048
     Dates: start: 20101110, end: 20101118
  7. SIGMART [Concomitant]
     Indication: ANGINA PECTORIS
     Route: 048
     Dates: start: 20101110

REACTIONS (1)
  - DELIRIUM [None]
